FAERS Safety Report 5019470-3 (Version None)
Quarter: 2006Q2

REPORT INFORMATION
  Report Type: 
  Country: None (occurrence: None)
  Receive Date: 20060531
  Receipt Date: 20060519
  Transmission Date: 20061013
  Serious: Yes (Life-Threatening, Other)
  Sender: FDA-Public Use
  Company Number: 2006066221

PATIENT
  Age: 92 Year
  Sex: Female

DRUGS (5)
  1. NORVASC [Suspect]
     Indication: HYPERTENSION
     Dosage: 5 MG, ORAL
     Route: 048
     Dates: start: 20010305, end: 20051213
  2. CLARITIN [Suspect]
     Indication: RASH
     Dosage: 10 MG, ORAL; SEE IMAGE
     Route: 048
     Dates: start: 20051115, end: 20051213
  3. CLARITIN [Suspect]
     Indication: RASH
     Dosage: 10 MG, ORAL; SEE IMAGE
     Route: 048
     Dates: start: 20060221, end: 20060307
  4. ALLOPURINOL [Suspect]
     Indication: HYPERURICAEMIA
     Dosage: 200 MG, ORAL
     Route: 048
     Dates: start: 20051019, end: 20051213
  5. OLMETEC (OLMESARTAN) [Suspect]
     Indication: HYPERTENSION
     Dosage: 20 MG, ORAL
     Route: 048
     Dates: start: 20051208

REACTIONS (9)
  - ASTHMA [None]
  - ECZEMA [None]
  - GASTROINTESTINAL HAEMORRHAGE [None]
  - HYPERURICAEMIA [None]
  - MELAENA [None]
  - PLATELET COUNT DECREASED [None]
  - PNEUMONIA [None]
  - PURPURA [None]
  - REFUSAL OF TREATMENT BY PATIENT [None]
